FAERS Safety Report 5917131-7 (Version None)
Quarter: 2008Q4

REPORT INFORMATION
  Report Type: 
  Country: None (occurrence: None)
  Receive Date: 20081010
  Receipt Date: 20081010
  Transmission Date: 20090506
  Serious: Yes (Other)
  Sender: FDA-Public Use
  Company Number: None

PATIENT
  Age: 63 Year
  Sex: Female
  Weight: 86.1834 kg

DRUGS (2)
  1. SIMVASTATIN [Suspect]
     Indication: BLOOD CHOLESTEROL INCREASED
     Dosage: 40 MG PO QD PO
     Route: 048
     Dates: start: 20070901
  2. PRAVACHOL [Suspect]
     Indication: BLOOD CHOLESTEROL INCREASED
     Dosage: 40 MG PO QD PO
     Route: 048
     Dates: start: 20070801

REACTIONS (5)
  - ABDOMINAL PAIN UPPER [None]
  - MYALGIA [None]
  - NAUSEA [None]
  - RASH GENERALISED [None]
  - VOMITING [None]
